FAERS Safety Report 9328245 (Version 1)
Quarter: 2013Q2

REPORT INFORMATION
  Report Type: Spontaneous
  Country: US (occurrence: US)
  Receive Date: 20130604
  Receipt Date: 20130604
  Transmission Date: 20140414
  Serious: No
  Sender: FDA-Public Use
  Company Number: US-SANOFI-AVENTIS-2012SA039539

PATIENT
  Age: 60 Year
  Sex: Male
  Weight: 111 kg

DRUGS (5)
  1. LANTUS [Suspect]
     Indication: TYPE 2 DIABETES MELLITUS
     Dosage: DOSE:80 UNIT(S)
     Route: 058
     Dates: start: 201204
  2. LANTUS [Suspect]
     Indication: TYPE 2 DIABETES MELLITUS
     Dosage: DOSE:45 UNIT(S)
     Route: 058
  3. SOLOSTAR [Suspect]
     Indication: TYPE 2 DIABETES MELLITUS
     Dates: start: 201204
  4. NOVOLOG [Suspect]
     Dosage: DOSE:10 UNIT(S)
     Route: 065
     Dates: end: 2012
  5. NOVOLOG [Suspect]
     Route: 065
     Dates: start: 2012

REACTIONS (2)
  - Vision blurred [Unknown]
  - Headache [Unknown]
